FAERS Safety Report 19254948 (Version 2)
Quarter: 2021Q2

REPORT INFORMATION
  Report Type: Spontaneous
  Country: US (occurrence: US)
  Receive Date: 20210513
  Receipt Date: 20210609
  Transmission Date: 20210717
  Serious: Yes (Hospitalization)
  Sender: FDA-Public Use
  Company Number: US-PFIZER INC-2021488225

PATIENT
  Age: 44 Year
  Sex: Female
  Weight: 56.69 kg

DRUGS (6)
  1. LIDOCAINE HCL [Suspect]
     Active Substance: LIDOCAINE HYDROCHLORIDE
     Indication: TENDON DISORDER
  2. LIDOCAINE HCL [Suspect]
     Active Substance: LIDOCAINE HYDROCHLORIDE
     Indication: TARSAL TUNNEL SYNDROME
  3. LIDOCAINE HCL [Suspect]
     Active Substance: LIDOCAINE HYDROCHLORIDE
     Indication: LIGAMENT DISORDER
  4. LIDOCAINE HCL [Suspect]
     Active Substance: LIDOCAINE HYDROCHLORIDE
     Indication: MYALGIA
  5. DEXTROSE WATER [Concomitant]
     Active Substance: DEXTROSE
     Dosage: UNK
     Dates: start: 20210412, end: 20210412
  6. LIDOCAINE HCL [Suspect]
     Active Substance: LIDOCAINE HYDROCHLORIDE
     Indication: LOCAL ANAESTHESIA
     Dosage: 1 ML OF 0.1%
     Dates: start: 20210412

REACTIONS (3)
  - Pain [Recovered/Resolved]
  - Oedema [Recovered/Resolved]
  - Contusion [Recovered/Resolved]

NARRATIVE: CASE EVENT DATE: 20210412
